FAERS Safety Report 24992129 (Version 2)
Quarter: 2025Q1

REPORT INFORMATION
  Report Type: Spontaneous
  Country: IT (occurrence: IT)
  Receive Date: 20250220
  Receipt Date: 20250314
  Transmission Date: 20250409
  Serious: Yes (Life-Threatening, Other)
  Sender: TEVA
  Company Number: None

PATIENT
  Age: 22 Year
  Sex: Male
  Weight: 90 kg

DRUGS (5)
  1. ARIPIPRAZOLE [Suspect]
     Active Substance: ARIPIPRAZOLE
     Indication: Product used for unknown indication
     Dosage: BLISTER PACK OF 7 TABLETS EACH (TOTAL 42 TABLETS) ARIPIPRAZOLE 10 MG
     Route: 048
     Dates: start: 20220709, end: 20220709
  2. TEGRETOL [Suspect]
     Active Substance: CARBAMAZEPINE
     Indication: Product used for unknown indication
     Dosage: 12 BLISTERS OF 10 TABLETS (120 TABLETS) TEGRETOL 200 MG + 1 BLISTER (10 TABLETS) TEGRETOL 200 MG ...
     Route: 048
     Dates: start: 20220709, end: 20220709
  3. XANAX [Suspect]
     Active Substance: ALPRAZOLAM
     Indication: Product used for unknown indication
     Dosage: XANAX 0.5 PACK WITH 2 BLISTERS, 20 TOTAL EMPTY TABLETS
     Route: 048
     Dates: start: 20220709, end: 20220709
  4. VENLAFAXINE HYDROCHLORIDE [Suspect]
     Active Substance: VENLAFAXINE HYDROCHLORIDE
     Indication: Product used for unknown indication
     Dosage: 3 EMPTY BLISTERS OF 8 TABLETS EACH (TOTAL 24 TABLETS) OF EFEXOR 37.5 MG + 2 EMPTY BLISTERS (TOTAL...
     Route: 048
     Dates: start: 20220709, end: 20220709
  5. TACHIPIRINA [Suspect]
     Active Substance: ACETAMINOPHEN
     Indication: Product used for unknown indication
     Dosage: 1 BLISTER OF TACHIPIRINA 500 MG WITH 4 MISSING TABLETS
     Route: 048
     Dates: start: 20220709, end: 20220709

REACTIONS (5)
  - Drug abuse [Recovered/Resolved]
  - Aggression [Recovered/Resolved]
  - Coma [Recovered/Resolved]
  - Psychomotor hyperactivity [Recovered/Resolved]
  - Intentional self-injury [Recovered/Resolved]

NARRATIVE: CASE EVENT DATE: 20220709
